FAERS Safety Report 7795014-8 (Version None)
Quarter: 2011Q4

REPORT INFORMATION
  Report Type: 
  Country: None (occurrence: None)
  Receive Date: 20111003
  Receipt Date: 20111003
  Transmission Date: 20120403
  Serious: Yes (Hospitalization)
  Sender: FDA-Public Use
  Company Number: None

PATIENT
  Age: 56 Year
  Sex: Male
  Weight: 95.5 kg

DRUGS (1)
  1. AZITHROMYCIN [Suspect]
     Indication: UPPER RESPIRATORY TRACT INFECTION
     Dosage: 500 MG ONCE PO
     Route: 048
     Dates: start: 20110624, end: 20110629

REACTIONS (9)
  - VOMITING [None]
  - DIARRHOEA [None]
  - JAUNDICE [None]
  - FATIGUE [None]
  - HEPATITIS C VIRUS TEST POSITIVE [None]
  - LIVER FUNCTION TEST ABNORMAL [None]
  - DYSPNOEA [None]
  - COUGH [None]
  - NAUSEA [None]
